FAERS Safety Report 13755686 (Version 1)
Quarter: 2017Q3

REPORT INFORMATION
  Report Type: Spontaneous
  Country: JP (occurrence: JP)
  Receive Date: 20170714
  Receipt Date: 20170714
  Transmission Date: 20171127
  Serious: Yes (Hospitalization)
  Sender: FDA-Public Use
  Company Number: JP-SUN PHARMACEUTICAL INDUSTRIES LTD-2015R1-97408

PATIENT
  Age: 32 Year
  Sex: Female
  Weight: 59 kg

DRUGS (7)
  1. RITODRINE [Suspect]
     Active Substance: RITODRINE
     Indication: TOCOLYSIS
     Dosage: UNK
     Route: 065
  2. RITODRINE [Suspect]
     Active Substance: RITODRINE
     Dosage: UNK
     Route: 065
  3. NIFEDIPINE. [Suspect]
     Active Substance: NIFEDIPINE
     Indication: TOCOLYSIS
     Dosage: 20 MG, DAILY
     Route: 065
  4. DICLOFENAC [Suspect]
     Active Substance: DICLOFENAC
     Indication: TOCOLYSIS
     Dosage: UNK
     Route: 065
  5. RITODRINE [Suspect]
     Active Substance: RITODRINE
     Indication: TOCOLYSIS
     Dosage: UNK
     Route: 065
  6. MAGNESIUM SULFATE. [Suspect]
     Active Substance: MAGNESIUM SULFATE
     Indication: TOCOLYSIS
     Dosage: UNK
     Route: 065
  7. BETAMETHASONE. [Suspect]
     Active Substance: BETAMETHASONE
     Indication: MATERNAL THERAPY TO ENHANCE FOETAL LUNG MATURITY
     Dosage: UNK
     Route: 065

REACTIONS (3)
  - Premature delivery [Unknown]
  - Exposure during pregnancy [Recovered/Resolved]
  - Acute pulmonary oedema [Recovering/Resolving]
